FAERS Safety Report 13550921 (Version 2)
Quarter: 2017Q2

REPORT INFORMATION
  Report Type: Spontaneous
  Country: US (occurrence: US)
  Receive Date: 20170516
  Receipt Date: 20170530
  Transmission Date: 20170830
  Serious: Yes (Hospitalization)
  Sender: FDA-Public Use
  Company Number: US-INTERPRAG-PM-OCA2017-00398

PATIENT

DRUGS (20)
  1. GABAPENTIN. [Concomitant]
     Active Substance: GABAPENTIN
     Dosage: 100 MG, UNK
     Dates: start: 20170220
  2. VANCOMYCIN [Concomitant]
     Active Substance: VANCOMYCIN
     Dosage: 50 MG/ML, UNK
     Dates: start: 20170410
  3. PRAVASTATIN. [Concomitant]
     Active Substance: PRAVASTATIN
     Dosage: 40 MG, UNK
     Dates: start: 20170220
  4. SERTRALINE [Concomitant]
     Active Substance: SERTRALINE HYDROCHLORIDE
     Dosage: 100 MG, UNK
     Dates: start: 20170222
  5. AMLODIPINE [Concomitant]
     Active Substance: AMLODIPINE BESYLATE
     Dosage: 2.5 MG, UNK
     Dates: start: 20161207
  6. MORPHINE SULF [Concomitant]
     Active Substance: MORPHINE SULFATE
     Dosage: 30 MG, UNK
     Dates: start: 20170331
  7. INCRUSE ELLIPTA [Concomitant]
     Active Substance: UMECLIDINIUM BROMIDE
     Dosage: 62.5 ?G, UNK
     Dates: start: 20170214
  8. MONTELUKAST [Concomitant]
     Active Substance: MONTELUKAST SODIUM
     Dosage: 10 MG, UNK
     Dates: start: 20170106
  9. DIPHENOXYLATE/ATROPINE [Concomitant]
     Active Substance: ATROPINE\DIPHENOXYLATE
     Dosage: 2.5 MG, UNK
     Dates: start: 20161207
  10. CIPROFLOXACIN. [Concomitant]
     Active Substance: CIPROFLOXACIN
  11. HYDROMET                           /01224801/ [Concomitant]
  12. ONDANSETRON [Concomitant]
     Active Substance: ONDANSETRON
  13. ALENDRONATE [Concomitant]
     Active Substance: ALENDRONATE SODIUM
     Dosage: 70 MG, UNK
     Dates: start: 20170308
  14. SERTRALINE [Concomitant]
     Active Substance: SERTRALINE HYDROCHLORIDE
     Dosage: 50 MG, UNK
     Dates: start: 20170104, end: 20170221
  15. FUROSEMIDE. [Concomitant]
     Active Substance: FUROSEMIDE
     Dosage: 20 MG, UNK
     Dates: start: 20161118
  16. SPIRONOLACTONE. [Concomitant]
     Active Substance: SPIRONOLACTONE
     Dosage: 50 MG, UNK
     Dates: start: 20170127
  17. OCALIVA [Suspect]
     Active Substance: OBETICHOLIC ACID
     Indication: BILIARY CIRRHOSIS
     Dosage: 5 MG, QD
     Route: 048
     Dates: start: 20170331
  18. ALPRAZOLAM. [Concomitant]
     Active Substance: ALPRAZOLAM
     Dosage: 1 MG, UNK
     Dates: start: 20161114
  19. OMEPRAZOLE. [Concomitant]
     Active Substance: OMEPRAZOLE
     Dosage: 40 MG, UNK
     Dates: start: 20161118
  20. URSODIOL. [Concomitant]
     Active Substance: URSODIOL
     Dosage: 500 MG, UNK
     Dates: start: 20170424

REACTIONS (2)
  - Infectious colitis [Unknown]
  - Drug ineffective [Unknown]

NARRATIVE: CASE EVENT DATE: 201704
